FAERS Safety Report 25064422 (Version 3)
Quarter: 2025Q2

REPORT INFORMATION
  Report Type: Spontaneous
  Country: JP (occurrence: JP)
  Receive Date: 20250311
  Receipt Date: 20250611
  Transmission Date: 20250716
  Serious: Yes (Death, Hospitalization, Other)
  Sender: BRISTOL-MYERS SQUIBB COMPANY
  Company Number: JP-ONO-2025JP004355

PATIENT
  Age: 76 Year
  Sex: Male
  Weight: 66 kg

DRUGS (6)
  1. OPDIVO [Suspect]
     Active Substance: NIVOLUMAB
     Indication: Oesophageal carcinoma
     Route: 041
     Dates: start: 20230310, end: 20250110
  2. LANDIOLOL HYDROCHLORIDE [Suspect]
     Active Substance: LANDIOLOL HYDROCHLORIDE
     Indication: Product used for unknown indication
     Route: 041
     Dates: start: 20250329
  3. MICAFUNGIN SODIUM [Suspect]
     Active Substance: MICAFUNGIN SODIUM
     Indication: Aspergillus infection
     Dates: start: 20250319, end: 20250326
  4. MICAFUNGIN SODIUM [Suspect]
     Active Substance: MICAFUNGIN SODIUM
     Dates: start: 20250401, end: 20250403
  5. MICAFUNGIN SODIUM [Suspect]
     Active Substance: MICAFUNGIN SODIUM
     Dates: start: 20250404
  6. CARBOHYDRATES\FATTY ACIDS\MINERALS\PROTEIN\VITAMINS [Concomitant]
     Active Substance: CARBOHYDRATES\FATTY ACIDS\MINERALS\PROTEIN\VITAMINS
     Indication: Product used for unknown indication
     Dosage: UNK, Q12H
     Route: 048

REACTIONS (19)
  - Sepsis [Fatal]
  - Toxic epidermal necrolysis [Fatal]
  - Disseminated intravascular coagulation [Unknown]
  - Pneumothorax spontaneous [Unknown]
  - Endophthalmitis [Unknown]
  - Cerebral infarction [Unknown]
  - Type 1 diabetes mellitus [Unknown]
  - Renal impairment [Unknown]
  - Pemphigoid [Unknown]
  - Pseudomonas test positive [Unknown]
  - Candida infection [Unknown]
  - Cytomegalovirus test positive [Unknown]
  - Cough [Unknown]
  - Chest pain [Recovering/Resolving]
  - Dermatitis [Unknown]
  - Blood creatine phosphokinase increased [Unknown]
  - Skin disorder [Unknown]
  - Staphylococcal infection [Unknown]
  - Aspergillus infection [Unknown]

NARRATIVE: CASE EVENT DATE: 20230512
